FAERS Safety Report 11272218 (Version 1)
Quarter: 2015Q3

REPORT INFORMATION
  Report Type: Spontaneous
  Country: US (occurrence: None)
  Receive Date: 20150713
  Receipt Date: 20150713
  Transmission Date: 20151125
  Serious: Yes (Death, Hospitalization, Other)
  Sender: FDA-Public Use
  Company Number: 2015JUB00208

PATIENT
  Age: 67 Year
  Sex: Male

DRUGS (2)
  1. LOSARTAN POTASSIUM. [Suspect]
     Active Substance: LOSARTAN POTASSIUM
  2. SIMVASTATIN (SIMVASTATIN) UNKNOWN, UNKNOWN [Suspect]
     Active Substance: SIMVASTATIN

REACTIONS (2)
  - Mental status changes [None]
  - Acute hepatic failure [None]
